FAERS Safety Report 4915462-0 (Version None)
Quarter: 2006Q1

REPORT INFORMATION
  Report Type: 
  Country: None (occurrence: None)
  Receive Date: 20060217
  Receipt Date: 20050930
  Transmission Date: 20060701
  Serious: Yes (Death, Other)
  Sender: FDA-Public Use
  Company Number: PR-MERCK-0510USA00847

PATIENT
  Age: 77 Year
  Sex: Male

DRUGS (1)
  1. VIOXX [Suspect]
     Indication: MONARTHRITIS
     Route: 048
     Dates: start: 20030101, end: 20040101

REACTIONS (4)
  - CARDIOPULMONARY FAILURE [None]
  - DEPRESSION [None]
  - MYOCARDIAL INFARCTION [None]
  - SUDDEN DEATH [None]
